FAERS Safety Report 7361747-0 (Version None)
Quarter: 2011Q1

REPORT INFORMATION
  Report Type: 
  Country: None (occurrence: None)
  Receive Date: 20110318
  Receipt Date: 20110307
  Transmission Date: 20110831
  Serious: Yes (Hospitalization, Disabling)
  Sender: FDA-Public Use
  Company Number: JP-MERCK-1102USA03413

PATIENT
  Age: 65 Year
  Sex: Female
  Weight: 59 kg

DRUGS (9)
  1. LICORICE [Concomitant]
     Dosage: DOSAGE IS UNCERTAIN DURING A DAY
     Route: 048
  2. ONEALFA [Concomitant]
     Dosage: DOSAGE IS UNCERTAIN DURING A DAY
     Route: 048
  3. RENIVEZE [Concomitant]
     Dosage: DOSAGE IS UNCERTAIN DURING A DAY
     Route: 048
  4. SLOW-K [Concomitant]
     Dosage: DOSAGE IS UNCERTAIN DURING A DAY
     Route: 048
  5. MENATETRENONE [Concomitant]
     Dosage: DOSAGE IS UNCERTAIN DURING A DAY
     Route: 065
  6. ACTONEL [Concomitant]
     Dosage: DOSAGE IS UNCERTAIN DURING A DAY
     Route: 048
  7. LUNETORON [Concomitant]
     Dosage: DOSAGE IS UNCERTAIN DURING A DAY
     Route: 065
  8. THYRADIN-S [Concomitant]
     Dosage: DOSAGE IS UNCERTAIN DURING A DAY
     Route: 048
  9. ZETIA [Suspect]
     Indication: HYPERLIPIDAEMIA
     Dosage: DOSAGE IS UNCERTAIN DURING A DAY
     Route: 048
     Dates: start: 20101009, end: 20101231

REACTIONS (6)
  - BLOOD CREATINE PHOSPHOKINASE INCREASED [None]
  - BLADDER DISORDER [None]
  - HEPATIC ENZYME INCREASED [None]
  - ANORECTAL DISORDER [None]
  - ILLUSION [None]
  - HYPOAESTHESIA [None]
